FAERS Safety Report 25851454 (Version 1)
Quarter: 2025Q3

REPORT INFORMATION
  Report Type: Spontaneous
  Country: US (occurrence: US)
  Receive Date: 20250926
  Receipt Date: 20250926
  Transmission Date: 20251020
  Serious: Yes (Other)
  Sender: DR REDDYS
  Company Number: US-DRL-USA-USA/2025/09/014487

PATIENT
  Age: 19 Year
  Sex: Male

DRUGS (4)
  1. CLONIDINE [Suspect]
     Active Substance: CLONIDINE
     Indication: Tourette^s disorder
  2. TOPIRAMATE [Suspect]
     Active Substance: TOPIRAMATE
     Indication: Tourette^s disorder
  3. GUANFACINE [Concomitant]
     Active Substance: GUANFACINE
     Indication: Tourette^s disorder
  4. CANNABIS SATIVA SUBSP. INDICA TOP [Concomitant]
     Active Substance: CANNABIS SATIVA SUBSP. INDICA TOP
     Indication: Tourette^s disorder

REACTIONS (1)
  - Drug ineffective for unapproved indication [Unknown]
